FAERS Safety Report 5136450-8 (Version None)
Quarter: 2006Q4

REPORT INFORMATION
  Report Type: 
  Country: None (occurrence: None)
  Receive Date: 20061027
  Receipt Date: 20060601
  Transmission Date: 20070319
  Serious: No
  Sender: FDA-Public Use
  Company Number: US-BRISTOL-MYERS SQUIBB COMPANY-13398722

PATIENT
  Age: 85 Year
  Sex: Female

DRUGS (1)
  1. KENALOG-40 [Suspect]
     Route: 031
     Dates: start: 20060526

REACTIONS (1)
  - EYE INFECTION [None]
